FAERS Safety Report 8859636 (Version 1)
Quarter: 2012Q4

REPORT INFORMATION
  Report Type: 
  Country: US (occurrence: US)
  Receive Date: 20121025
  Receipt Date: 20121025
  Transmission Date: 20130627
  Serious: Yes (Other)
  Sender: FDA-Public Use
  Company Number: US-BAYER-2012-109523

PATIENT
  Age: 66 Year
  Sex: Male
  Weight: 122.45 kg

DRUGS (7)
  1. ALEVE CAPLET/TABLET,MIDOL EXTENDED RELIEF CAPLET [Suspect]
     Indication: HEADACHE
     Dosage: 2 DF, ONCE
     Route: 048
     Dates: start: 20121015, end: 20121015
  2. PREVACID [Concomitant]
  3. UNKNOWN [Concomitant]
  4. UNKNOWN [Concomitant]
  5. LIVERITE [Concomitant]
  6. POTASSIUM [Concomitant]
  7. EQUATE ASPIRIN [Concomitant]

REACTIONS (3)
  - Chemical burn of gastrointestinal tract [Recovered/Resolved]
  - Swollen tongue [Recovered/Resolved]
  - Oral mucosal erythema [Recovered/Resolved]
